FAERS Safety Report 20962311 (Version 1)
Quarter: 2022Q2

REPORT INFORMATION
  Report Type: Spontaneous
  Country: US (occurrence: None)
  Receive Date: 20220615
  Receipt Date: 20220615
  Transmission Date: 20220721
  Serious: Yes (Hospitalization)
  Sender: FDA-Public Use
  Company Number: 2022A214245

PATIENT
  Age: 20219 Day
  Sex: Female
  Weight: 59.9 kg

DRUGS (12)
  1. BYETTA [Suspect]
     Active Substance: EXENATIDE
     Indication: Hyperglycaemia
     Dosage: BEFORE CLINICAL TRIAL
     Route: 058
  2. BYETTA [Suspect]
     Active Substance: EXENATIDE
     Indication: Type 2 diabetes mellitus
     Dosage: BEFORE CLINICAL TRIAL
     Route: 058
  3. BYETTA [Suspect]
     Active Substance: EXENATIDE
     Indication: Clinical trial participant
     Dosage: BEFORE CLINICAL TRIAL
     Route: 058
  4. BYETTA [Suspect]
     Active Substance: EXENATIDE
     Indication: Hyperglycaemia
     Dosage: RESTART AFTER CLINICAL TRIAL
     Route: 058
  5. BYETTA [Suspect]
     Active Substance: EXENATIDE
     Indication: Type 2 diabetes mellitus
     Dosage: RESTART AFTER CLINICAL TRIAL
     Route: 058
  6. BYETTA [Suspect]
     Active Substance: EXENATIDE
     Indication: Clinical trial participant
     Dosage: RESTART AFTER CLINICAL TRIAL
     Route: 058
  7. BYETTA [Suspect]
     Active Substance: EXENATIDE
     Indication: Hyperglycaemia
     Dosage: AFTER 30 DAYS OF OMISSION
     Route: 058
     Dates: start: 20220305
  8. BYETTA [Suspect]
     Active Substance: EXENATIDE
     Indication: Type 2 diabetes mellitus
     Dosage: AFTER 30 DAYS OF OMISSION
     Route: 058
     Dates: start: 20220305
  9. BYETTA [Suspect]
     Active Substance: EXENATIDE
     Indication: Clinical trial participant
     Dosage: AFTER 30 DAYS OF OMISSION
     Route: 058
     Dates: start: 20220305
  10. BYETTA [Suspect]
     Active Substance: EXENATIDE
     Indication: Clinical trial participant
     Route: 058
  11. GLIPIZIDE ER [Concomitant]
     Active Substance: GLIPIZIDE
  12. ATORVASTATIN CALCIUM [Concomitant]
     Active Substance: ATORVASTATIN CALCIUM

REACTIONS (19)
  - Accident at work [Recovered/Resolved with Sequelae]
  - Multiple fractures [Recovered/Resolved with Sequelae]
  - Tooth fracture [Unknown]
  - Craniocerebral injury [Not Recovered/Not Resolved]
  - Internal injury [Recovered/Resolved with Sequelae]
  - Blood glucose increased [Recovering/Resolving]
  - Non-alcoholic fatty liver [Not Recovered/Not Resolved]
  - Circadian rhythm sleep disorder [Not Recovered/Not Resolved]
  - Nausea [Not Recovered/Not Resolved]
  - Fatigue [Not Recovered/Not Resolved]
  - Constipation [Not Recovered/Not Resolved]
  - Blood glucose decreased [Recovered/Resolved]
  - Urticaria [Not Recovered/Not Resolved]
  - Alopecia [Unknown]
  - Vomiting [Not Recovered/Not Resolved]
  - Abdominal pain [Unknown]
  - Somnolence [Unknown]
  - Product dose omission issue [Recovered/Resolved]
  - Intentional dose omission [Recovered/Resolved]

NARRATIVE: CASE EVENT DATE: 20150131
